FAERS Safety Report 18318578 (Version 1)
Quarter: 2020Q3

REPORT INFORMATION
  Report Type: Other
  Country: CA (occurrence: CA)
  Receive Date: 20200928
  Receipt Date: 20200928
  Transmission Date: 20201103
  Serious: Yes (Other)
  Sender: FDA-Public Use
  Company Number: CA-CELLTRION INC.-2020CA026492

PATIENT

DRUGS (12)
  1. RITUXIMAB (UNKNOWN) [Suspect]
     Active Substance: RITUXIMAB
     Indication: RHEUMATOID ARTHRITIS
     Dosage: 1000 MG
     Route: 041
  2. RITUXIMAB (UNKNOWN) [Suspect]
     Active Substance: RITUXIMAB
     Indication: INTERSTITIAL LUNG DISEASE
  3. ACETAMINOPHEN. [Concomitant]
     Active Substance: ACETAMINOPHEN
     Indication: PREMEDICATION
     Dosage: UNK
     Route: 042
  4. PREDNISONE. [Concomitant]
     Active Substance: PREDNISONE
     Dosage: UNK
  5. CELEBREX [Concomitant]
     Active Substance: CELECOXIB
     Dosage: UNK
  6. SENOKOT [Concomitant]
     Active Substance: SENNOSIDES
     Dosage: UNK
  7. CALCIUM [Concomitant]
     Active Substance: CALCIUM
     Dosage: UNK
  8. DIPHENHYDRAMINE. [Concomitant]
     Active Substance: DIPHENHYDRAMINE
     Indication: PREMEDICATION
     Dosage: UNK
     Route: 042
  9. PANTOLOC [PANTOPRAZOLE] [Concomitant]
     Active Substance: PANTOPRAZOLE SODIUM
     Dosage: UNK
  10. SULFATRIM [Concomitant]
     Active Substance: SULFAMETHOXAZOLE\TRIMETHOPRIM
     Dosage: UNK
  11. COUMADIN [Concomitant]
     Active Substance: WARFARIN SODIUM
     Dosage: UNK
  12. METHYLPREDNISOLONE. [Concomitant]
     Active Substance: METHYLPREDNISOLONE
     Indication: PREMEDICATION
     Dosage: UNK
     Route: 042

REACTIONS (3)
  - Off label use [Not Recovered/Not Resolved]
  - Product use in unapproved indication [Not Recovered/Not Resolved]
  - Oral fungal infection [Not Recovered/Not Resolved]
